FAERS Safety Report 13553266 (Version 1)
Quarter: 2017Q2

REPORT INFORMATION
  Report Type: Spontaneous
  Country: US (occurrence: US)
  Receive Date: 20170516
  Receipt Date: 20170516
  Transmission Date: 20170830
  Serious: Yes (Hospitalization)
  Sender: FDA-Public Use
  Company Number: None

PATIENT
  Age: 74 Year
  Sex: Male
  Weight: 71.1 kg

DRUGS (5)
  1. REVLAMID [Concomitant]
  2. LISINOPRIL. [Concomitant]
     Active Substance: LISINOPRIL
  3. ZOLEDRONIC ACID [Suspect]
     Active Substance: ZOLEDRONIC ACID
     Indication: PLASMA CELL MYELOMA
     Dosage: OTHER FREQUENCY:MONTHLY TO Q3MONTH;?
  4. NINLARO [Concomitant]
     Active Substance: IXAZOMIB
  5. ASA [Concomitant]
     Active Substance: ASPIRIN

REACTIONS (5)
  - Motor dysfunction [None]
  - Abasia [None]
  - Impaired self-care [None]
  - Loss of personal independence in daily activities [None]
  - Muscle injury [None]

NARRATIVE: CASE EVENT DATE: 20170315
